FAERS Safety Report 5897701-5 (Version None)
Quarter: 2008Q3

REPORT INFORMATION
  Report Type: 
  Country: None (occurrence: None)
  Receive Date: 20080925
  Receipt Date: 20080924
  Transmission Date: 20090109
  Serious: Yes (Hospitalization)
  Sender: FDA-Public Use
  Company Number: FR-BRISTOL-MYERS SQUIBB COMPANY-14205017

PATIENT
  Age: 80 Year
  Sex: Female

DRUGS (8)
  1. COAPROVEL TABS 300MG/12.5MG [Suspect]
     Dosage: 1 DOSAGE FORM: 1 TABLET
     Route: 048
     Dates: end: 20080414
  2. LASIX [Interacting]
     Dosage: REDUCED TO 60MG
     Route: 048
  3. ALDACTONE [Interacting]
     Dosage: 1DOSAGE FORM:1 TABLET. STRENGTH:50MG
     Route: 048
     Dates: end: 20080414
  4. PLAVIX [Concomitant]
     Dosage: 1 DOSAGE FORM: 1 TABLET
     Route: 048
  5. ASPIRIN [Concomitant]
     Dosage: 1 DOSAGE FORM: 1 SACHET.STRENGTH: 160MG
     Route: 048
  6. CORDARONE [Concomitant]
     Dosage: 1 DOSAGE FORM: 1 TABLET.5/7 DAYS
     Route: 048
  7. PROPOFAN [Concomitant]
     Dosage: 6 DOSAGE FORM: 6 TABLETS
     Route: 048
  8. PEVARYL [Concomitant]
     Dosage: 1 DOSAGE FORM: 1 APPLICATION
     Route: 061

REACTIONS (6)
  - BLOOD CREATININE INCREASED [None]
  - DEHYDRATION [None]
  - DRUG INTERACTION [None]
  - EPISTAXIS [None]
  - HYPERKALAEMIA [None]
  - HYPONATRAEMIA [None]
